FAERS Safety Report 7571806-5 (Version None)
Quarter: 2011Q2

REPORT INFORMATION
  Report Type: 
  Country: None (occurrence: None)
  Receive Date: 20110624
  Receipt Date: 20110613
  Transmission Date: 20111010
  Serious: Yes (Hospitalization)
  Sender: FDA-Public Use
  Company Number: IE-ELI_LILLY_AND_COMPANY-IE201106003614

PATIENT
  Sex: Female

DRUGS (9)
  1. FORTEO [Suspect]
     Indication: OSTEOPOROSIS
     Dosage: 20 UG, UNKNOWN
     Route: 065
     Dates: start: 20110512
  2. QUESTRAN [Concomitant]
     Dosage: UNK, UNKNOWN
     Route: 065
  3. LANSOPRAZOLE [Concomitant]
     Dosage: UNK, UNKNOWN
     Route: 065
  4. MAGNESIUM VIT C [Concomitant]
     Dosage: UNK, UNKNOWN
     Route: 065
  5. LOVAZA [Concomitant]
     Dosage: UNK, UNKNOWN
     Route: 065
  6. CENTRUM [Concomitant]
     Dosage: UNK, UNKNOWN
     Route: 065
  7. ACIDOPHILUS [Concomitant]
     Dosage: UNK, UNKNOWN
     Route: 065
  8. PREDNISOLONE [Concomitant]
     Dosage: UNK, UNKNOWN
     Route: 065
  9. BUTRANS [Concomitant]
     Dosage: UNK, UNKNOWN
     Route: 065

REACTIONS (1)
  - BLOOD SODIUM DECREASED [None]
